FAERS Safety Report 17877073 (Version 1)
Quarter: 2020Q2

REPORT INFORMATION
  Report Type: Spontaneous
  Country: CA (occurrence: CA)
  Receive Date: 20200609
  Receipt Date: 20200609
  Transmission Date: 20200714
  Serious: Yes (Other)
  Sender: FDA-Public Use
  Company Number: CA-PFIZER INC-2020221622

PATIENT
  Sex: Female

DRUGS (3)
  1. METHOTREXATE SODIUM. [Suspect]
     Active Substance: METHOTREXATE SODIUM
     Dosage: UNK
     Route: 048
  2. HUMIRA [Suspect]
     Active Substance: ADALIMUMAB
     Indication: CROHN^S DISEASE
     Dosage: UNK
     Route: 058
  3. PREDNISONE. [Concomitant]
     Active Substance: PREDNISONE

REACTIONS (17)
  - Faeces soft [Unknown]
  - Hiatus hernia [Unknown]
  - Impaired work ability [Unknown]
  - Scoliosis [Unknown]
  - Therapeutic product effect decreased [Unknown]
  - Anxiety [Unknown]
  - Arthralgia [Unknown]
  - Haemorrhoidal haemorrhage [Unknown]
  - Abdominal pain [Unknown]
  - Back pain [Unknown]
  - Constipation [Unknown]
  - Diarrhoea [Unknown]
  - Fibromyalgia [Unknown]
  - General physical condition abnormal [Unknown]
  - Bipolar disorder [Unknown]
  - Nausea [Unknown]
  - Tooth abscess [Unknown]
